FAERS Safety Report 17426273 (Version 1)
Quarter: 2020Q1

REPORT INFORMATION
  Report Type: Report from Study
  Country: FR (occurrence: FR)
  Receive Date: 20200218
  Receipt Date: 20200218
  Transmission Date: 20200409
  Serious: Yes (Hospitalization)
  Sender: FDA-Public Use
  Company Number: FR-ZYDUS-022183

PATIENT
  Age: 67 Year
  Sex: Female
  Weight: 84 kg

DRUGS (11)
  1. TEMESTA (LORAZEPAM) [Suspect]
     Active Substance: LORAZEPAM
     Indication: SLEEP DISORDER
     Route: 048
  2. SMECTA [Suspect]
     Active Substance: MONTMORILLONITE
     Indication: DIARRHOEA
     Route: 048
  3. LOXEN (NICARDIPINE) [Suspect]
     Active Substance: NICARDIPINE
     Indication: HYPERTENSION
     Route: 048
  4. GEMCITABINE. [Concomitant]
     Active Substance: GEMCITABINE
     Dosage: FIRST LINE
     Route: 065
     Dates: start: 201609, end: 201611
  5. ATEZOLIZUMAB. [Suspect]
     Active Substance: ATEZOLIZUMAB
     Indication: TRANSITIONAL CELL CARCINOMA
     Dosage: 40 DAYS OF TREATMENT
     Route: 041
     Dates: start: 20170511, end: 20170619
  6. RAMIPRIL. [Suspect]
     Active Substance: RAMIPRIL
     Indication: HYPERTENSION
     Route: 048
  7. PREDNISOLONE. [Suspect]
     Active Substance: PREDNISOLONE
     Indication: PRODUCT USED FOR UNKNOWN INDICATION
     Route: 048
  8. SPASFON (FRANCE) [Suspect]
     Active Substance: PHLOROGLUCINOL\1,3,5-TRIMETHOXYBENZENE
     Indication: PRODUCT USED FOR UNKNOWN INDICATION
     Route: 048
  9. LOVENOX [Suspect]
     Active Substance: ENOXAPARIN SODIUM
     Indication: THROMBOSIS PROPHYLAXIS
     Dosage: 4000 IU ANTI XA  /0.4 ML
     Route: 058
  10. CARBOPLATIN. [Concomitant]
     Active Substance: CARBOPLATIN
     Dosage: FIRST LINE
     Route: 065
     Dates: start: 201609, end: 201611
  11. PACLITAXEL. [Concomitant]
     Active Substance: PACLITAXEL
     Dosage: SECOND LINE
     Route: 065
     Dates: start: 201611, end: 201704

REACTIONS (1)
  - Ischaemic stroke [Recovering/Resolving]

NARRATIVE: CASE EVENT DATE: 20170709
